FAERS Safety Report 9490934 (Version 1)
Quarter: 2013Q3

REPORT INFORMATION
  Report Type: Spontaneous
  Country: US (occurrence: US)
  Receive Date: 20130830
  Receipt Date: 20130830
  Transmission Date: 20140515
  Serious: No
  Sender: FDA-Public Use
  Company Number: US-PFIZER INC-2013248746

PATIENT
  Sex: 0

DRUGS (3)
  1. CELEBREX [Suspect]
     Dosage: UNK
  2. ALEVE [Concomitant]
     Dosage: UNK
  3. ADVIL [Concomitant]

REACTIONS (1)
  - Drug effect incomplete [Unknown]
